FAERS Safety Report 9261602 (Version 1)
Quarter: 2013Q2

REPORT INFORMATION
  Report Type: Report from Study
  Country: US (occurrence: US)
  Receive Date: 20130429
  Receipt Date: 20130429
  Transmission Date: 20140414
  Serious: Yes (Hospitalization, Other)
  Sender: FDA-Public Use
  Company Number: US-ABBOTT-13P-163-1080003-00

PATIENT
  Age: 25 Year
  Sex: Male

DRUGS (15)
  1. HUMIRA [Suspect]
     Indication: CROHN^S DISEASE
     Dates: start: 20120916
  2. PEPCID [Concomitant]
     Indication: PRODUCT USED FOR UNKNOWN INDICATION
     Route: 048
  3. VSL 3 [Concomitant]
     Indication: PROBIOTIC THERAPY
     Dosage: 2 TABLETS DAILY
  4. MULTIVITAMIN [Concomitant]
     Indication: PRODUCT USED FOR UNKNOWN INDICATION
     Dosage: DAILY
  5. FISH OIL [Concomitant]
     Indication: PRODUCT USED FOR UNKNOWN INDICATION
     Dosage: DAILY
  6. TYLENOL EXTRA STRENGTH [Concomitant]
     Indication: PRODUCT USED FOR UNKNOWN INDICATION
  7. IBUPROFEN [Concomitant]
     Indication: PRODUCT USED FOR UNKNOWN INDICATION
  8. SOLUMEDROL [Concomitant]
     Indication: PRODUCT USED FOR UNKNOWN INDICATION
     Dosage: 120 MG DAILY
     Route: 042
  9. FENTANYL [Concomitant]
     Indication: PRODUCT USED FOR UNKNOWN INDICATION
     Dosage: PATCHES
  10. DILAUDID [Concomitant]
     Indication: PRODUCT USED FOR UNKNOWN INDICATION
     Dosage: 8 MG PER PCA PUMP
  11. PROZAC [Concomitant]
     Indication: PRODUCT USED FOR UNKNOWN INDICATION
     Dosage: 40 MG DAILY, TAPERED OFF
     Route: 048
  12. PROZAC [Concomitant]
     Dosage: 10 MG DAILY
     Route: 048
  13. LORAZEPAM [Concomitant]
     Indication: PRODUCT USED FOR UNKNOWN INDICATION
     Dosage: AS NEEDED EVERY SIX HOURS
     Route: 048
  14. XANAX [Concomitant]
     Indication: ANXIETY
     Route: 048
  15. LEXAPRO [Concomitant]
     Indication: PRODUCT USED FOR UNKNOWN INDICATION
     Dosage: 20 MG DAILY

REACTIONS (13)
  - Incision site haematoma [Unknown]
  - Subcutaneous abscess [Recovering/Resolving]
  - Wound [Recovering/Resolving]
  - Cellulitis [Recovering/Resolving]
  - Crohn^s disease [Recovering/Resolving]
  - Large intestinal ulcer [Unknown]
  - Urinary tract infection [Unknown]
  - Localised intraabdominal fluid collection [Unknown]
  - Portal vein thrombosis [Unknown]
  - Suicidal ideation [Unknown]
  - Tachycardia [Unknown]
  - Anxiety [Unknown]
  - Tremor [Unknown]
